FAERS Safety Report 8503622-1 (Version None)
Quarter: 2012Q3

REPORT INFORMATION
  Report Type: 
  Country: None (occurrence: None)
  Receive Date: 20120711
  Receipt Date: 20120705
  Transmission Date: 20120928
  Serious: No
  Sender: FDA-Public Use
  Company Number: PHHY2012BR044331

PATIENT
  Age: 54 Year
  Sex: Female

DRUGS (1)
  1. DIOVAN HCT [Suspect]
     Indication: HYPERTENSION
     Dosage: 1DF (320/12.5 MG), DAILY
     Route: 048

REACTIONS (4)
  - MALAISE [None]
  - FEELING ABNORMAL [None]
  - NERVOUSNESS [None]
  - DRUG DISPENSING ERROR [None]
